FAERS Safety Report 8562295-2 (Version None)
Quarter: 2012Q3

REPORT INFORMATION
  Report Type: 
  Country: None (occurrence: None)
  Receive Date: 20120802
  Receipt Date: 20120711
  Transmission Date: 20120928
  Serious: No
  Sender: FDA-Public Use
  Company Number: US-AMGEN-USASP2012043213

PATIENT
  Sex: Male

DRUGS (3)
  1. CYCLOSPORINE [Concomitant]
     Dosage: UNK
  2. ENBREL [Suspect]
     Indication: PSORIASIS
     Dosage: 50 MG, QWK
     Dates: start: 20060101, end: 20060101
  3. METHOTREXATE [Concomitant]
     Dosage: UNK

REACTIONS (1)
  - RENAL DISORDER [None]
